FAERS Safety Report 13591603 (Version 1)
Quarter: 2017Q2

REPORT INFORMATION
  Report Type: Spontaneous
  Country: US (occurrence: US)
  Receive Date: 20170530
  Receipt Date: 20170530
  Transmission Date: 20170830
  Serious: No
  Sender: FDA-Public Use
  Company Number: None

PATIENT
  Age: 29 Year
  Sex: Female
  Weight: 5.4 kg

DRUGS (1)
  1. IMPLANON [Suspect]
     Active Substance: ETONOGESTREL
     Indication: CONTRACEPTION
     Dosage: ?          QUANTITY:1 INSERTED;OTHER FREQUENCY:INJECTED;?
     Route: 058

REACTIONS (8)
  - Abdominal pain [None]
  - Pruritus [None]
  - Back pain [None]
  - No reaction on previous exposure to drug [None]
  - Post procedural complication [None]
  - Fear [None]
  - Arthralgia [None]
  - Procedural pain [None]

NARRATIVE: CASE EVENT DATE: 20170526
